FAERS Safety Report 12549555 (Version 13)
Quarter: 2023Q1

REPORT INFORMATION
  Report Type: Spontaneous
  Country: US (occurrence: US)
  Receive Date: 20160712
  Receipt Date: 20230323
  Transmission Date: 20230417
  Serious: Yes (Hospitalization, Other)
  Sender: FDA-Public Use
  Company Number: US-PFIZER INC-2016335757

PATIENT
  Age: 72 Year
  Sex: Female
  Weight: 59 kg

DRUGS (11)
  1. PREMPRO [Suspect]
     Active Substance: ESTROGENS, CONJUGATED\MEDROXYPROGESTERONE ACETATE
     Indication: Menstrual disorder
     Dosage: 0625/2.5, OVAL PINK PILL, TAKES 1 PER DAY BY MOUTH
     Route: 048
  2. PREMPRO [Suspect]
     Active Substance: ESTROGENS, CONJUGATED\MEDROXYPROGESTERONE ACETATE
     Indication: Hormone replacement therapy
     Dosage: 1 DF, 1X/DAY
     Route: 048
     Dates: start: 1996
  3. PREMPRO [Suspect]
     Active Substance: ESTROGENS, CONJUGATED\MEDROXYPROGESTERONE ACETATE
     Indication: Thyroid disorder
     Dosage: 8 TABLETS EVERY DAY
  4. PREMPRO [Suspect]
     Active Substance: ESTROGENS, CONJUGATED\MEDROXYPROGESTERONE ACETATE
     Indication: Contraception
     Dosage: 1 DF, 1X/DAY; (2.5MG/0.625MG)
     Route: 048
  5. PREMPRO [Suspect]
     Active Substance: ESTROGENS, CONJUGATED\MEDROXYPROGESTERONE ACETATE
     Dosage: 1 DF, ALTERNATE DAY
     Route: 048
  6. SYNTHROID [Concomitant]
     Active Substance: LEVOTHYROXINE SODIUM
     Indication: Thyroid disorder
     Dosage: UNK
  7. SYNTHROID [Concomitant]
     Active Substance: LEVOTHYROXINE SODIUM
     Indication: Thyroid disorder
     Dosage: 150 MG, 1X/DAY
     Route: 048
  8. ASPIRIN [Concomitant]
     Active Substance: ASPIRIN
     Dosage: 81 MG
  9. QUININE SULFATE [Concomitant]
     Active Substance: QUININE SULFATE
     Indication: Muscular dystrophy
     Dosage: UNK
  10. JANUVIA [Concomitant]
     Active Substance: SITAGLIPTIN PHOSPHATE
     Indication: Diabetes mellitus
     Dosage: UNK
     Dates: start: 202302
  11. TRULICITY [Concomitant]
     Active Substance: DULAGLUTIDE
     Dosage: UNK

REACTIONS (31)
  - Malaise [Recovered/Resolved]
  - Depression [Recovered/Resolved]
  - Nausea [Recovered/Resolved]
  - Loss of consciousness [Recovered/Resolved]
  - Gait disturbance [Recovered/Resolved]
  - Humerus fracture [Unknown]
  - Hip arthroplasty [Unknown]
  - Fall [Unknown]
  - Osteoarthritis [Unknown]
  - Myocardial infarction [Unknown]
  - Limb operation [Unknown]
  - Shock [Unknown]
  - Deep vein thrombosis [Unknown]
  - Neuropathy peripheral [Unknown]
  - Therapeutic product effect delayed [Unknown]
  - Feeling abnormal [Recovered/Resolved]
  - Arthralgia [Unknown]
  - Bone disorder [Unknown]
  - Withdrawal syndrome [Unknown]
  - Hypertension [Unknown]
  - Pain [Unknown]
  - Vomiting [Unknown]
  - Amnesia [Not Recovered/Not Resolved]
  - Abdominal pain [Unknown]
  - Vaginal discharge [Unknown]
  - Condition aggravated [Unknown]
  - Emotional distress [Unknown]
  - Product dose omission issue [Unknown]
  - Off label use [Unknown]
  - Off label use [Unknown]
  - Product use in unapproved therapeutic environment [Unknown]

NARRATIVE: CASE EVENT DATE: 20130101
